FAERS Safety Report 9486650 (Version 1)
Quarter: 2013Q3

REPORT INFORMATION
  Report Type: Spontaneous
  Country: US (occurrence: None)
  Receive Date: 20130827
  Receipt Date: 20130827
  Transmission Date: 20140515
  Serious: Yes (Disabling)
  Sender: FDA-Public Use
  Company Number: None

PATIENT
  Age: 65 Year
  Sex: Female
  Weight: 77.11 kg

DRUGS (8)
  1. MACROBID [Suspect]
  2. GABAPENTIN [Concomitant]
  3. LIPITOR [Concomitant]
  4. SYMBICORT [Concomitant]
  5. DICYCLOMINE [Concomitant]
  6. ATENOLOL-CHLORALIDRM [Concomitant]
  7. ASPIRIN [Concomitant]
  8. KLOR-CON [Concomitant]

REACTIONS (7)
  - Hypoaesthesia [None]
  - Paraesthesia [None]
  - Blood potassium decreased [None]
  - Neuropathy peripheral [None]
  - Toxic neuropathy [None]
  - Gait disturbance [None]
  - Pain [None]
